FAERS Safety Report 6598098-8 (Version None)
Quarter: 2010Q1

REPORT INFORMATION
  Report Type: 
  Country: None (occurrence: None)
  Receive Date: 20100224
  Receipt Date: 20050307
  Transmission Date: 20100710
  Serious: No
  Sender: FDA-Public Use
  Company Number: US-ALLERGAN-200502871

PATIENT
  Age: 44 Year
  Sex: Male

DRUGS (7)
  1. BOTOX [Suspect]
     Indication: MUSCLE SPASMS
     Dosage: 400UNITS, PRN
     Route: 030
     Dates: start: 20040624, end: 20050101
  2. BOTOX [Suspect]
     Indication: PAIN
  3. ATENOLOL [Concomitant]
     Indication: HYPERTENSION
     Dosage: 25MG, QD
     Route: 048
  4. ASPIRIN [Concomitant]
     Indication: HYPERTENSION
     Dosage: 325MG, QD
     Route: 048
  5. LISINOPRIL [Concomitant]
     Indication: HYPERTENSION
     Dosage: 20MG, QD
     Route: 048
  6. PROTONIX [Concomitant]
     Indication: GASTROOESOPHAGEAL REFLUX DISEASE
     Dosage: 40MG, QD
     Route: 048
  7. NAPROXEN [Concomitant]
     Indication: PAIN
     Dosage: 375MG, BID
     Route: 048

REACTIONS (1)
  - INJECTION SITE ATROPHY [None]
